FAERS Safety Report 12133701 (Version 2)
Quarter: 2016Q1

REPORT INFORMATION
  Report Type: Spontaneous
  Country: US (occurrence: US)
  Receive Date: 20160301
  Receipt Date: 20160315
  Transmission Date: 20160526
  Serious: No
  Sender: FDA-Public Use
  Company Number: US-PFIZER INC-2016129403

PATIENT
  Age: 77 Year
  Sex: Female
  Weight: 74.84 kg

DRUGS (7)
  1. IBRANCE [Suspect]
     Active Substance: PALBOCICLIB
     Dosage: 75 MG, CYCLIC (1 TAB DAILY DAYS 1-21, THEN 7 DAYS OFF)
     Route: 048
     Dates: start: 20160301, end: 20160302
  2. ZITHROMAX [Suspect]
     Active Substance: AZITHROMYCIN DIHYDRATE
  3. AROMASIN [Suspect]
     Active Substance: EXEMESTANE
  4. IBRANCE [Suspect]
     Active Substance: PALBOCICLIB
     Indication: BREAST CANCER METASTATIC
     Dosage: 125 MG, 1X/DAY
     Route: 048
  5. FASLODEX [Concomitant]
     Active Substance: FULVESTRANT
     Dosage: 125 MG, CYCLIC (250 MG/5 ML SYRG, EVERY OTHER MONTH)
     Route: 030
  6. IBRANCE [Suspect]
     Active Substance: PALBOCICLIB
     Dosage: 125 MG, 1X/DAY
     Route: 048
     Dates: start: 20160227
  7. ONDANSETRON [Concomitant]
     Active Substance: ONDANSETRON
     Indication: NAUSEA
     Dosage: 8 MG, AS NEEDED(EVERY 12 HOURS )
     Route: 048

REACTIONS (4)
  - Chromaturia [Unknown]
  - Dysuria [Not Recovered/Not Resolved]
  - Urinary tract infection [Unknown]
  - Vulvovaginal dryness [Unknown]
